FAERS Safety Report 4814384-3 (Version None)
Quarter: 2005Q4

REPORT INFORMATION
  Report Type: 
  Country: None (occurrence: None)
  Receive Date: 20051028
  Receipt Date: 20050816
  Transmission Date: 20060501
  Serious: No
  Sender: FDA-Public Use
  Company Number: US-GLAXOSMITHKLINE-A0570425A

PATIENT
  Age: 45 Year
  Sex: Female

DRUGS (10)
  1. ADVAIR DISKUS 100/50 [Suspect]
     Indication: ASTHMA
     Route: 055
     Dates: start: 20030101, end: 20030101
  2. SEREVENT [Suspect]
     Indication: ASTHMA
     Dosage: 1BLS TWICE PER DAY
     Route: 055
     Dates: start: 20030101, end: 20050801
  3. PULMICORT [Concomitant]
  4. MAXAIR [Concomitant]
  5. DOXYCYCLINE [Concomitant]
  6. CEPHALEXIN [Concomitant]
  7. FLONASE [Concomitant]
  8. ZYRTEC [Concomitant]
  9. CALCIUM GLUCONATE [Concomitant]
  10. FOSAMAX [Concomitant]

REACTIONS (5)
  - DYSPHONIA [None]
  - DYSPNOEA [None]
  - LUNG DISORDER [None]
  - PRODUCTIVE COUGH [None]
  - WHEEZING [None]
